FAERS Safety Report 6075880-7 (Version None)
Quarter: 2009Q1

REPORT INFORMATION
  Report Type: 
  Country: None (occurrence: None)
  Receive Date: 20090212
  Receipt Date: 20090209
  Transmission Date: 20090719
  Serious: Yes (Hospitalization)
  Sender: FDA-Public Use
  Company Number: US-WYE-H08147209

PATIENT
  Age: 75 Year
  Sex: Female

DRUGS (3)
  1. TEMSIROLIMUS [Suspect]
     Indication: MULTIPLE MYELOMA
     Route: 042
     Dates: start: 20081215, end: 20090202
  2. TEMSIROLIMUS [Suspect]
     Route: 042
     Dates: start: 20081117, end: 20081124
  3. VELCADE [Suspect]
     Indication: MULTIPLE MYELOMA
     Dosage: 1.6 MG/M^2 WEEKLY FOR 4
     Route: 042
     Dates: start: 20081119, end: 20090202

REACTIONS (1)
  - LOCALISED INTRAABDOMINAL FLUID COLLECTION [None]
